FAERS Safety Report 9604190 (Version 6)
Quarter: 2015Q3

REPORT INFORMATION
  Report Type: Spontaneous
  Country: US (occurrence: US)
  Receive Date: 20131008
  Receipt Date: 20150728
  Transmission Date: 20151125
  Serious: Yes (Hospitalization, Disabling, Other)
  Sender: FDA-Public Use
  Company Number: US-009507513-1310USA001889

PATIENT
  Sex: Female
  Weight: 58.96 kg

DRUGS (4)
  1. FOSAMAX [Suspect]
     Active Substance: ALENDRONATE SODIUM
     Dosage: 70 MG, UNK
     Route: 048
     Dates: start: 20020701, end: 200807
  2. ALENDRONATE SODIUM. [Suspect]
     Active Substance: ALENDRONATE SODIUM
     Indication: OSTEOPOROSIS
     Dosage: 70 MG, UNK
     Route: 048
     Dates: start: 20080302, end: 20080902
  3. FOSAMAX [Suspect]
     Active Substance: ALENDRONATE SODIUM
     Indication: OSTEOPOROSIS
     Dosage: 10 MG, UNK
     Route: 048
     Dates: start: 20011120, end: 200207
  4. ALENDRONATE SODIUM. [Suspect]
     Active Substance: ALENDRONATE SODIUM
     Indication: OSTEOPOROSIS
     Dosage: 70 MG, UNK
     Route: 048
     Dates: start: 20081027, end: 2009

REACTIONS (18)
  - Fall [Unknown]
  - Oedema peripheral [Unknown]
  - Diverticulum [Unknown]
  - Femur fracture [Unknown]
  - Pancytopenia [Unknown]
  - Lymphoma [Unknown]
  - Gastrointestinal disorder [Unknown]
  - Aortic stenosis [Unknown]
  - Osteoarthritis [Unknown]
  - Femur fracture [Recovering/Resolving]
  - Blood cholesterol increased [Unknown]
  - Pneumonia [Unknown]
  - Anaemia postoperative [Unknown]
  - Atrial fibrillation [Recovered/Resolved]
  - Haemoglobin decreased [Unknown]
  - Fall [Unknown]
  - Treatment noncompliance [Unknown]
  - Intramedullary rod insertion [Unknown]

NARRATIVE: CASE EVENT DATE: 20070911
